FAERS Safety Report 7007887-7 (Version None)
Quarter: 2010Q3

REPORT INFORMATION
  Report Type: 
  Country: None (occurrence: None)
  Receive Date: 20100922
  Receipt Date: 20100915
  Transmission Date: 20110219
  Serious: Yes (Hospitalization)
  Sender: FDA-Public Use
  Company Number: US-ROCHE-727957

PATIENT
  Sex: Female

DRUGS (6)
  1. BEVACIZUMAB [Suspect]
     Indication: BREAST CANCER
     Dosage: DATE OF LAST DOSE PRIOR TO SAE: 10 AUGUST 2010, HOLD DATE: 31 AUGUST 2010, DOSE, FREQUENCY: PROTOCOL
     Route: 042
     Dates: start: 20100427, end: 20100831
  2. DOCETAXEL [Suspect]
     Indication: BREAST CANCER
     Dosage: DATE OF LAST DOSE PRIOR TO SAE: 10 AUGUST 2010, DOSE, ROUTE AND FREQUENCY: PROTOCOL.
     Route: 042
     Dates: start: 20100427
  3. CYCLOPHOSPHAMIDE [Suspect]
     Indication: BREAST CANCER
     Dosage: DOSE, FREQUENCY, ROUTE FROM PROTOCOL, LAST ADMINISTERED DATE: 10 AUGUST 2010.
     Route: 042
     Dates: start: 20100427
  4. CEFUROXIME [Concomitant]
  5. AUGMENTIN '125' [Concomitant]
  6. TYLENOL-500 [Concomitant]

REACTIONS (1)
  - CELLULITIS [None]
